FAERS Safety Report 13084790 (Version 1)
Quarter: 2017Q1

REPORT INFORMATION
  Report Type: Spontaneous
  Country: US (occurrence: US)
  Receive Date: 20170103
  Receipt Date: 20170103
  Transmission Date: 20170428
  Serious: Yes (Hospitalization)
  Sender: FDA-Public Use
  Company Number: None

PATIENT
  Age: 68 Year
  Sex: Male
  Weight: 96.9 kg

DRUGS (1)
  1. DOXORUBICIN [Suspect]
     Active Substance: DOXORUBICIN
     Indication: DIFFUSE LARGE B-CELL LYMPHOMA
     Dosage: 120 MG OTHER IV
     Route: 042
     Dates: start: 20160208, end: 20160526

REACTIONS (3)
  - Cardiomyopathy [None]
  - Condition aggravated [None]
  - Cardiac failure congestive [None]

NARRATIVE: CASE EVENT DATE: 20161114
